FAERS Safety Report 12889334 (Version 1)
Quarter: 2016Q4

REPORT INFORMATION
  Report Type: Spontaneous
  Country: US (occurrence: US)
  Receive Date: 20161027
  Receipt Date: 20161027
  Transmission Date: 20170207
  Serious: Yes (Hospitalization, Other)
  Sender: FDA-Public Use
  Company Number: US-ASTELLAS-2016US042089

PATIENT
  Age: 68 Year
  Sex: Female

DRUGS (6)
  1. SULFAMETHOXAZOLE AND TRIMETHOPRIM [Concomitant]
     Active Substance: SULFAMETHOXAZOLE\TRIMETHOPRIM
     Indication: INFECTION PROPHYLAXIS
     Dosage: UNK, UNKNOWN FREQ.
     Route: 048
  2. AZATHIOPRINE. [Suspect]
     Active Substance: AZATHIOPRINE
     Indication: LIVER TRANSPLANT
     Route: 065
  3. TACROLIMUS. [Suspect]
     Active Substance: TACROLIMUS
     Indication: LIVER TRANSPLANT
     Route: 065
  4. AMPICILLIN/SULBACTAM ACTAVIS [Concomitant]
     Indication: PRODUCT USED FOR UNKNOWN INDICATION
     Route: 065
  5. METHYLPREDNISOLONE. [Suspect]
     Active Substance: METHYLPREDNISOLONE
     Indication: LIVER TRANSPLANT
     Dosage: 200 MG, UNKNOWN FREQ. (TAPER)
     Route: 065
  6. ACYCLOVIR                          /00587301/ [Concomitant]
     Active Substance: ACYCLOVIR
     Indication: INFECTION PROPHYLAXIS
     Dosage: UNK, UNKNOWN FREQ.
     Route: 065

REACTIONS (12)
  - Abdominal abscess [Unknown]
  - Cytomegalovirus infection [Unknown]
  - Liver function test abnormal [Unknown]
  - Intra-abdominal haematoma [Unknown]
  - Pneumonia klebsiella [Recovered/Resolved]
  - Pelvic abscess [Unknown]
  - Enterococcal infection [Unknown]
  - Hypotension [Unknown]
  - Abdominal adhesions [Unknown]
  - Renal failure [Recovering/Resolving]
  - Pneumonia [Unknown]
  - Peritonitis [Recovered/Resolved]
